FAERS Safety Report 5015516-7 (Version None)
Quarter: 2006Q2

REPORT INFORMATION
  Report Type: 
  Country: None (occurrence: None)
  Receive Date: 20060526
  Receipt Date: 20060515
  Transmission Date: 20061013
  Serious: Yes (Hospitalization)
  Sender: FDA-Public Use
  Company Number: 2006-142828-NL

PATIENT
  Age: 69 Year
  Sex: Male

DRUGS (8)
  1. DEXAMETHASONE TAB [Suspect]
     Indication: PALLIATIVE CARE
     Dosage: 6 MG ORAL
     Route: 048
  2. DICLOFENAC POTASSIUM [Suspect]
     Indication: BONE PAIN
     Dosage: 75 MG ORAL
     Route: 048
     Dates: end: 20060325
  3. GABAPENTIN [Concomitant]
  4. ZOPICLONE [Concomitant]
  5. AMILORIDE HYDROCHLORIDE W/FUROSEMIDE [Concomitant]
  6. FLECAINIDE ACETATE [Concomitant]
  7. CITALOPRAM HYDROBROMIDE [Concomitant]
  8. FENTANYL [Concomitant]

REACTIONS (4)
  - ABDOMINAL PAIN [None]
  - GASTRIC ULCER [None]
  - HAEMATEMESIS [None]
  - MELAENA [None]
